FAERS Safety Report 19434736 (Version 1)
Quarter: 2021Q2

REPORT INFORMATION
  Report Type: Spontaneous
  Country: US (occurrence: US)
  Receive Date: 20210617
  Receipt Date: 20210617
  Transmission Date: 20210717
  Serious: No
  Sender: FDA-Public Use
  Company Number: US-ROCHE-2619008

PATIENT
  Sex: Female
  Weight: 59.93 kg

DRUGS (1)
  1. ACTEMRA [Suspect]
     Active Substance: TOCILIZUMAB
     Indication: RHEUMATOID ARTHRITIS
     Route: 058

REACTIONS (9)
  - Injection site pruritus [Unknown]
  - Inflammation [Unknown]
  - Lyme disease [Recovering/Resolving]
  - Skin disorder [Unknown]
  - Injection site erythema [Unknown]
  - Intentional product misuse [Unknown]
  - Off label use [Unknown]
  - Premature ageing [Unknown]
  - Cough [Unknown]
